FAERS Safety Report 5757988-6 (Version None)
Quarter: 2008Q2

REPORT INFORMATION
  Report Type: 
  Country: None (occurrence: None)
  Receive Date: 20080602
  Receipt Date: 20080602
  Transmission Date: 20081010
  Serious: Yes (Death, Life-Threatening)
  Sender: FDA-Public Use
  Company Number: None

PATIENT
  Age: 84 Year
  Sex: Female
  Weight: 55.3388 kg

DRUGS (1)
  1. DIGITEK  125MCG  ACTAVIS TOTOWA/MEDISTAT-TAM [Suspect]
     Indication: CARDIAC DISORDER
     Dosage: 125MCG PO
     Route: 048
     Dates: start: 20080201, end: 20080507

REACTIONS (2)
  - INCORRECT DOSE ADMINISTERED [None]
  - PHARMACEUTICAL PRODUCT COMPLAINT [None]
